FAERS Safety Report 9789281 (Version 1)
Quarter: 2013Q4

REPORT INFORMATION
  Report Type: Spontaneous
  Country: SE (occurrence: SE)
  Receive Date: 20131231
  Receipt Date: 20131231
  Transmission Date: 20140711
  Serious: Yes (Other)
  Sender: FDA-Public Use
  Company Number: SE-ACTAVIS-2013-23575

PATIENT
  Sex: Male

DRUGS (10)
  1. SALBUTAMOL [Suspect]
     Dosage: UNK
     Route: 065
  2. SINGULAIR [Concomitant]
     Indication: ASTHMA
     Dosage: 10 MG, UNK
     Route: 065
  3. SYMBICORT [Concomitant]
     Indication: PRODUCT USED FOR UNKNOWN INDICATION
     Dosage: 320/9X2-4 TIMES, UNK
     Route: 065
  4. SPIRIVA [Concomitant]
     Indication: PRODUCT USED FOR UNKNOWN INDICATION
     Dosage: 18 MICROGRAMS POWDER
     Route: 065
     Dates: start: 2010
  5. COMBIVENT [Concomitant]
     Indication: PRODUCT USED FOR UNKNOWN INDICATION
     Dosage: UNK
     Route: 065
  6. PREDNISOLON                        /00016201/ [Concomitant]
     Indication: PROPHYLAXIS
     Dosage: UNK
     Route: 065
  7. ADRENALIN                          /00003901/ [Concomitant]
     Indication: PRODUCT USED FOR UNKNOWN INDICATION
     Dosage: UNK
     Route: 065
  8. AERIUS                             /01009701/ [Concomitant]
     Indication: PRODUCT USED FOR UNKNOWN INDICATION
  9. NASONEX [Concomitant]
     Indication: PRODUCT USED FOR UNKNOWN INDICATION
     Dosage: NASAL SPRAY
     Route: 045
  10. ADRENALIN                          /00003901/ [Concomitant]
     Indication: PRODUCT USED FOR UNKNOWN INDICATION

REACTIONS (4)
  - Asthma [Unknown]
  - Drug ineffective [Unknown]
  - Oedema mucosal [Unknown]
  - Mucosal inflammation [Unknown]
